FAERS Safety Report 15624405 (Version 1)
Quarter: 2018Q4

REPORT INFORMATION
  Report Type: Spontaneous
  Country: CO (occurrence: CO)
  Receive Date: 20181116
  Receipt Date: 20181116
  Transmission Date: 20190205
  Serious: Yes (Other)
  Sender: FDA-Public Use
  Company Number: CO-BIOVITRUM-2018CO1402

PATIENT
  Age: 20 Year
  Sex: Female

DRUGS (1)
  1. ANAKINRA [Suspect]
     Active Substance: ANAKINRA
     Indication: MEVALONATE KINASE DEFICIENCY

REACTIONS (1)
  - Cardiac failure [Recovered/Resolved]
